FAERS Safety Report 5248108-5 (Version None)
Quarter: 2007Q1

REPORT INFORMATION
  Report Type: 
  Country: None (occurrence: None)
  Receive Date: 20070227
  Receipt Date: 20070221
  Transmission Date: 20070707
  Serious: Yes (Disabling)
  Sender: FDA-Public Use
  Company Number: GB-GLAXOSMITHKLINE-B0459838A

PATIENT
  Age: 50 Year
  Sex: Male

DRUGS (3)
  1. PAROXETINE HCL [Suspect]
     Indication: DEPRESSION
     Route: 048
     Dates: start: 19980101
  2. TRAZODONE HCL [Suspect]
     Indication: INSOMNIA
     Route: 048
     Dates: start: 20060101
  3. CHOLESTYRAMINE [Concomitant]
     Route: 048
     Dates: start: 20030101

REACTIONS (5)
  - DYSKINESIA [None]
  - MUSCLE SPASMS [None]
  - MUSCLE TWITCHING [None]
  - MYALGIA [None]
  - MYOTONIA [None]
